FAERS Safety Report 6447498-5 (Version None)
Quarter: 2009Q4

REPORT INFORMATION
  Report Type: 
  Country: None (occurrence: None)
  Receive Date: 20091119
  Receipt Date: 20091104
  Transmission Date: 20100525
  Serious: Yes (Other)
  Sender: FDA-Public Use
  Company Number: PL-GENENTECH-293574

PATIENT

DRUGS (1)
  1. AVASTIN [Suspect]
     Indication: CORNEAL NEOVASCULARISATION
     Dosage: 1 UNK, QD
     Route: 061

REACTIONS (1)
  - EYE DISORDER [None]
